FAERS Safety Report 19921386 (Version 1)
Quarter: 2021Q4

REPORT INFORMATION
  Report Type: Report from Study
  Country: AR (occurrence: AR)
  Receive Date: 20211006
  Receipt Date: 20211006
  Transmission Date: 20220303
  Serious: Yes (Other)
  Sender: FDA-Public Use
  Company Number: AR-TEVA-2021-AR-1961350

PATIENT
  Age: 52 Year
  Sex: Female

DRUGS (5)
  1. COPAXONE [Suspect]
     Active Substance: GLATIRAMER ACETATE
     Indication: Relapsing-remitting multiple sclerosis
     Route: 058
     Dates: start: 20060715, end: 202001
  2. COPAXONE [Suspect]
     Active Substance: GLATIRAMER ACETATE
     Route: 058
     Dates: start: 202006
  3. LITHIUM [Concomitant]
     Active Substance: LITHIUM
  4. QUETIAPINE [Concomitant]
     Active Substance: QUETIAPINE
  5. CLONAZEPAM [Concomitant]
     Active Substance: CLONAZEPAM

REACTIONS (5)
  - Loss of consciousness [Recovered/Resolved]
  - Dysgeusia [Recovered/Resolved]
  - Fall [Recovered/Resolved]
  - Muscle tightness [Recovered/Resolved]
  - Feeling hot [Recovered/Resolved]

NARRATIVE: CASE EVENT DATE: 20060715
